FAERS Safety Report 15820775 (Version 1)
Quarter: 2018Q4

REPORT INFORMATION
  Report Type: Spontaneous
  Country: US (occurrence: US)
  Receive Date: 20181217
  Receipt Date: 20181217
  Transmission Date: 20190205
  Serious: No
  Sender: FDA-Public Use
  Company Number: None

PATIENT
  Sex: Female

DRUGS (1)
  1. MYCOPHENOLATE 500MG ROXANE [Suspect]
     Active Substance: MYCOPHENOLATE MOFETIL
     Indication: RETINOPATHY
     Route: 048
     Dates: start: 20180910

REACTIONS (6)
  - Dyspnoea [None]
  - Dysphonia [None]
  - Chest pain [None]
  - Thyroid cancer [None]
  - Headache [None]
  - Ataxia [None]
